FAERS Safety Report 7956356-6 (Version None)
Quarter: 2011Q4

REPORT INFORMATION
  Report Type: 
  Country: None (occurrence: None)
  Receive Date: 20111205
  Receipt Date: 20111201
  Transmission Date: 20120403
  Serious: Yes (Other)
  Sender: FDA-Public Use
  Company Number: CH-PFIZER INC-2011140835

PATIENT
  Sex: Female

DRUGS (3)
  1. EFFEXOR XR [Suspect]
     Dosage: 300 MG, 1X/DAY
     Route: 064
  2. EFFEXOR XR [Suspect]
     Indication: BIPOLAR DISORDER
     Dosage: 375 MG, 1X/DAY
     Route: 064
     Dates: start: 20010101
  3. LAMICTAL [Suspect]
     Indication: BIPOLAR DISORDER
     Dosage: 50 MG, 1X/DAY
     Route: 064
     Dates: start: 20090601, end: 20110205

REACTIONS (6)
  - CAESAREAN SECTION [None]
  - FLUID INTAKE REDUCED [None]
  - MATERNAL DRUGS AFFECTING FOETUS [None]
  - MATERNAL EXPOSURE TIMING UNSPECIFIED [None]
  - HEART SOUNDS ABNORMAL [None]
  - WEIGHT DECREASED [None]
